FAERS Safety Report 17176826 (Version 1)
Quarter: 2019Q4

REPORT INFORMATION
  Report Type: Spontaneous
  Country: BR (occurrence: BR)
  Receive Date: 20191219
  Receipt Date: 20191219
  Transmission Date: 20200122
  Serious: Yes (Hospitalization, Other)
  Sender: FDA-Public Use
  Company Number: BR-ASTRAZENECA-2019SF51184

PATIENT
  Age: 65 Year
  Sex: Male

DRUGS (16)
  1. DOXAZOSIN [Suspect]
     Active Substance: DOXAZOSIN MESYLATE
     Route: 065
     Dates: start: 20190408
  2. BROMAZEPAM [Suspect]
     Active Substance: BROMAZEPAM
     Dosage: 3.0MG UNKNOWN
     Route: 065
  3. LASIX [Concomitant]
     Active Substance: FUROSEMIDE
     Dosage: 40.0MG UNKNOWN
  4. DIOVAN [Concomitant]
     Active Substance: VALSARTAN
     Dosage: 80.0MG UNKNOWN
  5. CARBAMAZEPINE. [Suspect]
     Active Substance: CARBAMAZEPINE
     Dosage: 200.0MG UNKNOWN
     Route: 065
     Dates: start: 20080408, end: 20191115
  6. ASPIRIN PREVENT [Concomitant]
     Active Substance: ASPIRIN
     Dosage: 100.0MG UNKNOWN
  7. ENTRESTO [Concomitant]
     Active Substance: SACUBITRIL\VALSARTAN
     Dosage: 49/51 MG
  8. SELOZOK [Suspect]
     Active Substance: METOPROLOL SUCCINATE
     Indication: BRADYCARDIA
     Route: 048
     Dates: start: 20080408, end: 20191115
  9. CHILDREN^S ASPIRIN [Concomitant]
     Active Substance: ASPIRIN
     Dates: start: 20080408, end: 20191115
  10. SELOZOK [Suspect]
     Active Substance: METOPROLOL SUCCINATE
     Indication: BLOOD PRESSURE ABNORMAL
     Route: 048
     Dates: start: 20080408, end: 20191115
  11. LOSARTAN. [Concomitant]
     Active Substance: LOSARTAN
     Dosage: 50.0MG UNKNOWN
     Dates: start: 20080408, end: 20191115
  12. PLAVIX [Concomitant]
     Active Substance: CLOPIDOGREL BISULFATE
     Dosage: 75.0MG UNKNOWN
  13. CARDILOL [Concomitant]
     Active Substance: CARVEDILOL
     Dosage: 6.25MG UNKNOWN
  14. LOSEC [Suspect]
     Active Substance: OMEPRAZOLE
     Dosage: 20.0MG UNKNOWN
     Route: 048
     Dates: start: 20180408
  15. DOXAZOSIN [Suspect]
     Active Substance: DOXAZOSIN MESYLATE
     Dosage: 4.0MG UNKNOWN
     Route: 065
  16. ALDACTONE [Concomitant]
     Active Substance: SPIRONOLACTONE
     Dosage: 50.0MG UNKNOWN

REACTIONS (2)
  - Myocardial infarction [Recovered/Resolved]
  - Systolic hypertension [Unknown]

NARRATIVE: CASE EVENT DATE: 20191020
